FAERS Safety Report 5920307-6 (Version None)
Quarter: 2008Q4

REPORT INFORMATION
  Report Type: 
  Country: None (occurrence: None)
  Receive Date: 20081016
  Receipt Date: 20081009
  Transmission Date: 20090506
  Serious: Yes (Other)
  Sender: FDA-Public Use
  Company Number: BR-AVENTIS-200815530EU

PATIENT
  Age: 42 Year
  Sex: Male

DRUGS (6)
  1. CLEXANE [Suspect]
     Indication: DEEP VEIN THROMBOSIS
     Dates: start: 20080904, end: 20080913
  2. PLAMET [Concomitant]
     Indication: ANTIEMETIC SUPPORTIVE CARE
     Route: 048
     Dates: start: 20080904, end: 20080914
  3. PANTOZOL                           /01263202/ [Concomitant]
     Indication: PROPHYLAXIS
     Route: 048
     Dates: start: 20080904, end: 20080916
  4. MAREVAN [Concomitant]
     Indication: ANTICOAGULANT THERAPY
     Route: 048
     Dates: start: 20080904, end: 20080916
  5. CAPOTEN [Concomitant]
     Route: 048
     Dates: start: 20080904, end: 20080909
  6. NOVALGINA [Concomitant]
     Indication: PROPHYLAXIS
     Dosage: DOSE: 1 AMPOULE
     Route: 042
     Dates: start: 20080904, end: 20080909

REACTIONS (3)
  - ALANINE AMINOTRANSFERASE INCREASED [None]
  - ASPARTATE AMINOTRANSFERASE INCREASED [None]
  - LIVER INJURY [None]
